FAERS Safety Report 5653168-3 (Version None)
Quarter: 2008Q1

REPORT INFORMATION
  Report Type: 
  Country: None (occurrence: None)
  Receive Date: 20080131
  Receipt Date: 20071005
  Transmission Date: 20080703
  Serious: No
  Sender: FDA-Public Use
  Company Number: US200710003871

PATIENT
  Age: 66 Year
  Sex: Female

DRUGS (4)
  1. BYETTA [Suspect]
     Indication: TYPE 2 DIABETES MELLITUS
     Dosage: 10 UG, 2/D, SUBCUTANEOUS
     Route: 058
     Dates: start: 20071002
  2. EXENATIDE 10MCG PEN, DISPOSABLE DEVICE [Concomitant]
  3. GLIMEPIRIDE [Concomitant]
  4. GLUCOPHAGE [Concomitant]

REACTIONS (4)
  - ANOREXIA [None]
  - BLOOD PRESSURE INCREASED [None]
  - HEADACHE [None]
  - PALPITATIONS [None]
